FAERS Safety Report 14176923 (Version 1)
Quarter: 2017Q4

REPORT INFORMATION
  Report Type: Spontaneous
  Country: US (occurrence: US)
  Receive Date: 20171110
  Receipt Date: 20171110
  Transmission Date: 20180321
  Serious: Yes (Disabling)
  Sender: FDA-Public Use
  Company Number: None

PATIENT
  Age: 61 Year
  Sex: Female
  Weight: 80.1 kg

DRUGS (4)
  1. VITD2 [Concomitant]
  2. NIGHT SPLINT [Concomitant]
  3. CIPROFLOXACIN. [Suspect]
     Active Substance: CIPROFLOXACIN
     Indication: DIVERTICULITIS
     Dosage: ?          QUANTITY:14 TABLET(S);?
     Route: 048
  4. SYNTHROID [Concomitant]
     Active Substance: LEVOTHYROXINE SODIUM

REACTIONS (6)
  - Fatigue [None]
  - Malaise [None]
  - Pain [None]
  - Muscle disorder [None]
  - Tendon disorder [None]
  - Nausea [None]

NARRATIVE: CASE EVENT DATE: 20171101
